FAERS Safety Report 12736150 (Version 1)
Quarter: 2016Q3

REPORT INFORMATION
  Report Type: Spontaneous
  Country: CA (occurrence: CA)
  Receive Date: 20160913
  Receipt Date: 20160913
  Transmission Date: 20161109
  Serious: Yes (Other)
  Sender: FDA-Public Use
  Company Number: CA-ROCHE-1827989

PATIENT
  Sex: Male

DRUGS (3)
  1. XOLAIR [Suspect]
     Active Substance: OMALIZUMAB
     Indication: ASTHMA
     Route: 058
     Dates: start: 20150706
  2. CORTISONE [Concomitant]
     Active Substance: CORTISONE\HYDROCORTISONE
  3. SYMBICORT [Concomitant]
     Active Substance: BUDESONIDE\FORMOTEROL FUMARATE DIHYDRATE
     Dosage: UP TO 8 TIMES
     Route: 065

REACTIONS (9)
  - Fatigue [Unknown]
  - Respiratory tract congestion [Unknown]
  - Electrocardiogram ST segment depression [Unknown]
  - Dyspnoea exertional [Unknown]
  - Ventricular extrasystoles [Unknown]
  - Heart rate increased [Unknown]
  - Extrasystoles [Unknown]
  - Blood pressure increased [Unknown]
  - Wheezing [Unknown]
